FAERS Safety Report 25997777 (Version 1)
Quarter: 2025Q4

REPORT INFORMATION
  Report Type: Spontaneous
  Country: US (occurrence: US)
  Receive Date: 20251105
  Receipt Date: 20251105
  Transmission Date: 20260118
  Serious: No
  Sender: CELLTRION
  Company Number: US-CELLTRION INC.-2025US015882

PATIENT

DRUGS (1)
  1. INFLECTRA [Suspect]
     Active Substance: INFLIXIMAB-DYYB
     Indication: Colitis ulcerative
     Dosage: 700 MG EVERY 6 WEEKS
     Route: 042

REACTIONS (5)
  - Product storage error [Unknown]
  - Product distribution issue [Unknown]
  - Product use issue [Unknown]
  - Off label use [Unknown]
  - Overdose [Unknown]
